FAERS Safety Report 18301446 (Version 1)
Quarter: 2020Q3

REPORT INFORMATION
  Report Type: Spontaneous
  Country: US (occurrence: US)
  Receive Date: 20200923
  Receipt Date: 20200923
  Transmission Date: 20201103
  Serious: No
  Sender: FDA-Public Use
  Company Number: US-RECKITT BENCKISER HEALTHCARE INT LIMITED-RB-92246-2019

PATIENT
  Sex: Female

DRUGS (1)
  1. MUCINEX [Suspect]
     Active Substance: GUAIFENESIN
     Indication: PRODUCT USED FOR UNKNOWN INDICATION
     Dosage: 2 DOSAGE FORM AT AN UNKNOWN FREQUENCY
     Route: 065
     Dates: start: 20191101

REACTIONS (2)
  - Dyspnoea [Unknown]
  - Sinonasal obstruction [Unknown]

NARRATIVE: CASE EVENT DATE: 201911
